FAERS Safety Report 20652704 (Version 3)
Quarter: 2022Q4

REPORT INFORMATION
  Report Type: Report from Study
  Country: US (occurrence: US)
  Receive Date: 20220330
  Receipt Date: 20221123
  Transmission Date: 20230113
  Serious: Yes (Hospitalization, Other)
  Sender: FDA-Public Use
  Company Number: US-ABBVIE-22K-163-4334111-00

PATIENT
  Sex: Male
  Weight: 86 kg

DRUGS (13)
  1. HUMIRA [Suspect]
     Active Substance: ADALIMUMAB
     Indication: Colitis ulcerative
     Dosage: CITRATE FREE, STRENGTH:40 MG
     Route: 058
     Dates: start: 2011
  2. HUMIRA [Suspect]
     Active Substance: ADALIMUMAB
     Route: 058
  3. Janssen COVID-19 vaccine (COVID-19 vaccine NRVV Ad26 (JNJ 78436735) [Concomitant]
     Indication: COVID-19 immunisation
     Dosage: JOHNSON AND JOHNSON: 1822811, ONCE
     Route: 030
     Dates: start: 20211118, end: 20211118
  4. Janssen COVID-19 vaccine (COVID-19 vaccine NRVV Ad26 (JNJ 78436735) [Concomitant]
     Indication: COVID-19 immunisation
     Dosage: JOHNSON AND JOHNSON: 1805031, ONCE
     Route: 030
     Dates: start: 20210323, end: 20210323
  5. IMURAN [Concomitant]
     Active Substance: AZATHIOPRINE
     Indication: Colitis ulcerative
  6. KEPPRA [Concomitant]
     Active Substance: LEVETIRACETAM
     Indication: Seizure
  7. TRILEPTAL [Concomitant]
     Active Substance: OXCARBAZEPINE
     Indication: Seizure
  8. ELIQUIS [Concomitant]
     Active Substance: APIXABAN
     Indication: Thrombosis
  9. BENICAR [Concomitant]
     Active Substance: OLMESARTAN MEDOXOMIL
     Indication: Hypertension
  10. BYSTOLIC [Concomitant]
     Active Substance: NEBIVOLOL HYDROCHLORIDE
     Indication: Hypertension
  11. PANTOPRAZOLE [Concomitant]
     Active Substance: PANTOPRAZOLE
     Indication: Gastrooesophageal reflux disease
  12. NIFEDIPINE [Concomitant]
     Active Substance: NIFEDIPINE
     Indication: Hypertension
  13. SEROQUEL [Suspect]
     Active Substance: QUETIAPINE FUMARATE
     Indication: Memory impairment
     Route: 065

REACTIONS (7)
  - Seizure [Not Recovered/Not Resolved]
  - Somnolence [Unknown]
  - Meningoencephalitis herpetic [Recovered/Resolved]
  - Cardiac disorder [Unknown]
  - Memory impairment [Not Recovered/Not Resolved]
  - Immunodeficiency [Not Recovered/Not Resolved]
  - Scar [Not Recovered/Not Resolved]

NARRATIVE: CASE EVENT DATE: 20180101
